FAERS Safety Report 10046335 (Version 1)
Quarter: 2014Q1

REPORT INFORMATION
  Report Type: Spontaneous
  Country: US (occurrence: None)
  Receive Date: 20140326
  Receipt Date: 20140326
  Transmission Date: 20141002
  Serious: Yes (Other)
  Sender: FDA-Public Use
  Company Number: 2014/016

PATIENT
  Age: 80 Year
  Sex: Female

DRUGS (2)
  1. ROPINIROLE [Suspect]
     Indication: RESTLESS LEGS SYNDROME
  2. KAVA [Suspect]
     Indication: SLEEP DISORDER
     Route: 048

REACTIONS (3)
  - Acute psychosis [None]
  - Hallucination, visual [None]
  - Delusion [None]
